FAERS Safety Report 22653809 (Version 1)
Quarter: 2023Q2

REPORT INFORMATION
  Report Type: Other
  Country: GB (occurrence: GB)
  Receive Date: 20230629
  Receipt Date: 20230629
  Transmission Date: 20230722
  Serious: No
  Sender: FDA-Public Use
  Company Number: None

PATIENT

DRUGS (4)
  1. DORZOLAMIDE AND TIMOLOL [Suspect]
     Active Substance: DORZOLAMIDE HYDROCHLORIDE\TIMOLOL MALEATE
  2. ACETAZOLAMIDE [Concomitant]
     Active Substance: ACETAZOLAMIDE
     Dosage: TAKE ONE TWICE A DAY FOR 8 WEEKS AND THEN AS DI...
     Dates: start: 20221216
  3. AMLODIPINE [Concomitant]
     Active Substance: AMLODIPINE BESYLATE
     Dosage: TAKE ONE DAILY
     Dates: start: 20230210
  4. TIMOLOL [Concomitant]
     Active Substance: TIMOLOL
     Dosage: ONE DROP ONCE DAILY IN THE MORNING
     Dates: start: 20220901, end: 20230118

REACTIONS (1)
  - Palpitations [Unknown]
